FAERS Safety Report 18946586 (Version 12)
Quarter: 2025Q2

REPORT INFORMATION
  Report Type: Report from Study
  Country: US (occurrence: US)
  Receive Date: 20210226
  Receipt Date: 20250625
  Transmission Date: 20250716
  Serious: Yes (Other)
  Sender: TAKEDA
  Company Number: US-TAKEDA-2021TUS012501

PATIENT
  Age: 70 Year
  Sex: Female
  Weight: 58 kg

DRUGS (20)
  1. HUMAN IMMUNOGLOBULIN G [Suspect]
     Active Substance: HUMAN IMMUNOGLOBULIN G
     Indication: Immunodeficiency common variable
     Dosage: 11 GRAM, Q2WEEKS
     Dates: start: 20210105
  2. HUMAN IMMUNOGLOBULIN G [Suspect]
     Active Substance: HUMAN IMMUNOGLOBULIN G
     Dosage: 6 GRAM, 1/WEEK
  3. COVID-19 VACCINE NOS [Suspect]
     Active Substance: COVID-19 VACCINE
     Indication: Product used for unknown indication
  4. ACETAMINOPHEN [Concomitant]
     Active Substance: ACETAMINOPHEN
  5. DIPHENHYDRAMINE [Concomitant]
     Active Substance: DIPHENHYDRAMINE
  6. EPINEPHRINE [Concomitant]
     Active Substance: EPINEPHRINE
  7. LIDOCAINE [Concomitant]
     Active Substance: LIDOCAINE
  8. PROTONIX [Concomitant]
     Active Substance: PANTOPRAZOLE SODIUM
  9. ATENOLOL [Concomitant]
     Active Substance: ATENOLOL
  10. NIACIN [Concomitant]
     Active Substance: NIACIN
  11. NM-6603 [Concomitant]
     Active Substance: NM-6603
  12. VITAMIN D2 [Concomitant]
     Active Substance: ERGOCALCIFEROL
  13. MAGNESIUM OXIDE [Concomitant]
     Active Substance: MAGNESIUM OXIDE
  14. LISINOPRIL [Concomitant]
     Active Substance: LISINOPRIL
  15. ASPIRIN [Concomitant]
     Active Substance: ASPIRIN
  16. VITAMIN D [Concomitant]
     Active Substance: VITAMIN D NOS
  17. EZETIMIBE [Concomitant]
     Active Substance: EZETIMIBE
  18. VITAMIN D3 [Concomitant]
     Active Substance: CHOLECALCIFEROL
  19. DIPHENHYDRAMINE HYDROCHLORIDE [Concomitant]
     Active Substance: DIPHENHYDRAMINE HYDROCHLORIDE
  20. AMOXICILLIN [Concomitant]
     Active Substance: AMOXICILLIN

REACTIONS (34)
  - Sepsis [Unknown]
  - Haematochezia [Unknown]
  - Needle issue [Unknown]
  - Wrong technique in product usage process [Unknown]
  - Sneezing [Unknown]
  - Tinea pedis [Not Recovered/Not Resolved]
  - Fungal foot infection [Unknown]
  - Eye infection [Unknown]
  - Dermatitis contact [Unknown]
  - Nail disorder [Unknown]
  - Miliaria [Unknown]
  - Infection [Recovered/Resolved]
  - Seasonal allergy [Unknown]
  - Procedural pain [Unknown]
  - Skin fissures [Unknown]
  - Gastroenteritis viral [Unknown]
  - Treatment noncompliance [Unknown]
  - Nasopharyngitis [Unknown]
  - Allergy to arthropod sting [Unknown]
  - Food allergy [Recovering/Resolving]
  - Animal bite [Unknown]
  - COVID-19 [Recovering/Resolving]
  - Localised infection [Unknown]
  - Sinusitis [Not Recovered/Not Resolved]
  - Tinea pedis [Not Recovered/Not Resolved]
  - Injection site mass [Unknown]
  - Rash pruritic [Unknown]
  - Swelling [Unknown]
  - Infusion site pruritus [Unknown]
  - Erythema [Unknown]
  - Pyrexia [Unknown]
  - Paraesthesia [Unknown]
  - Nausea [Unknown]
  - Rash [Recovered/Resolved]

NARRATIVE: CASE EVENT DATE: 20240501
